FAERS Safety Report 5185319-1 (Version None)
Quarter: 2006Q4

REPORT INFORMATION
  Report Type: 
  Country: None (occurrence: None)
  Receive Date: 20061220
  Receipt Date: 20061213
  Transmission Date: 20070319
  Serious: Yes (Death, Other)
  Sender: FDA-Public Use
  Company Number: PHBS2006ES19444

PATIENT
  Age: 35 Year
  Sex: Male

DRUGS (2)
  1. CYCLOSPORINE [Suspect]
     Indication: LIVER TRANSPLANT
     Route: 065
  2. PREDNISONE TAB [Concomitant]

REACTIONS (3)
  - LUNG SQUAMOUS CELL CARCINOMA STAGE IV [None]
  - METASTASIS [None]
  - RENAL FAILURE [None]
